FAERS Safety Report 9606543 (Version 2)
Quarter: 2013Q4

REPORT INFORMATION
  Report Type: Spontaneous
  Country: US (occurrence: US)
  Receive Date: 20131008
  Receipt Date: 20131008
  Transmission Date: 20140711
  Serious: No
  Sender: FDA-Public Use
  Company Number: US-AMGEN-USASP2013040812

PATIENT
  Age: 66 Year
  Sex: Female
  Weight: 58.05 kg

DRUGS (2)
  1. PROLIA [Suspect]
     Indication: OSTEOPOROSIS POSTMENOPAUSAL
     Dosage: UNK UNK, Q6MO
     Route: 058
     Dates: start: 20111028, end: 20130503
  2. LAMISIL                            /00992601/ [Concomitant]

REACTIONS (1)
  - Rash [Recovering/Resolving]
